FAERS Safety Report 21714511 (Version 5)
Quarter: 2023Q1

REPORT INFORMATION
  Report Type: Spontaneous
  Country: FR (occurrence: FR)
  Receive Date: 20221212
  Receipt Date: 20230210
  Transmission Date: 20230417
  Serious: Yes (Death, Other)
  Sender: FDA-Public Use
  Company Number: None

PATIENT
  Age: 76 Year
  Sex: Male
  Weight: 60 kg

DRUGS (19)
  1. MONTELUKAST SODIUM [Suspect]
     Active Substance: MONTELUKAST SODIUM
     Indication: Hypertension
     Dosage: 1 DF
     Route: 048
  2. CHOLECALCIFEROL [Suspect]
     Active Substance: CHOLECALCIFEROL
     Indication: Vitamin D deficiency
     Dosage: 1 DF, QOW, (ZYMAD 50,000 IU, ORAL SOLUTION IN AMPOULE)
     Route: 048
  3. CHOLECALCIFEROL [Suspect]
     Active Substance: CHOLECALCIFEROL
     Dosage: 1 DF, QD
     Route: 048
     Dates: end: 20221029
  4. ACETAMINOPHEN\BELLADONNA LEAF\CAFFEINE\OPIUM [Suspect]
     Active Substance: ACETAMINOPHEN\BELLADONNA LEAF\CAFFEINE\OPIUM
     Indication: Pain
     Dosage: UNK
     Route: 048
     Dates: start: 20221026, end: 20221028
  5. TAHOR [Suspect]
     Active Substance: ATORVASTATIN CALCIUM
     Indication: Myocardial ischaemia
     Dosage: 1 DF, QD, (MEDICINAL PRODUCT : TAHOR 40 MG, FILM-COATED TABLET)
     Route: 048
     Dates: end: 20221029
  6. THIOCOLCHICOSIDE [Suspect]
     Active Substance: THIOCOLCHICOSIDE
     Indication: Arthralgia
     Dosage: 2 DF, QD, (MEDICINAL PRODUCT : THIOCOLCHICOSIDE ALMUS 4 MG,TABLET)
     Route: 048
     Dates: start: 20221026, end: 20221028
  7. PLAVIX [Suspect]
     Active Substance: CLOPIDOGREL BISULFATE
     Indication: Myocardial ischaemia
     Dosage: 1 DF, QD
     Route: 048
     Dates: end: 20221029
  8. ALLOPURINOL [Suspect]
     Active Substance: ALLOPURINOL
     Indication: Product used for unknown indication
     Dosage: 1 DF, QD (MEDICINAL PRODUCT : ALLOPURINOL ARROW 100 MG, TABLET)
     Route: 048
     Dates: end: 20221029
  9. DAPAGLIFLOZIN [Suspect]
     Active Substance: DAPAGLIFLOZIN
     Indication: Diabetes mellitus
     Dosage: 1 DF, QD (MEDICINAL PRODUCT : FORXIGA 10 MG,FILM-COATED TABLET)
     Route: 048
     Dates: end: 20221029
  10. FOLIC ACID [Suspect]
     Active Substance: FOLIC ACID
     Indication: Anaemia folate deficiency
     Dosage: 3 DF, QD
     Route: 048
     Dates: end: 20221029
  11. RAMIPRIL [Suspect]
     Active Substance: RAMIPRIL
     Indication: Myocardial ischaemia
     Dosage: 1 DF, QD
     Route: 048
     Dates: end: 20221029
  12. BISOPROLOL FUMARATE [Suspect]
     Active Substance: BISOPROLOL FUMARATE
     Indication: Myocardial ischaemia
     Dosage: 1 DF, QD
     Route: 048
     Dates: end: 20221029
  13. KETOPROFEN [Suspect]
     Active Substance: KETOPROFEN
     Indication: Pain
     Dosage: 4 DF, QD, (KETOPROFENE SUN 100 MG,FILM-COATED TABLET)
     Route: 048
     Dates: start: 20221026, end: 20221028
  14. DOLIPRANE [Suspect]
     Active Substance: ACETAMINOPHEN
     Indication: Pain
     Dosage: 4 DF, QD
     Route: 048
     Dates: start: 20221005, end: 20221028
  15. EPLERENONE [Suspect]
     Active Substance: EPLERENONE
     Indication: Hypertension
     Dosage: 1 DF, QD, (MEDICINAL PRODUCT : INSPRA 25 MG, FILM-COATED TABLET)
     Route: 048
     Dates: end: 20221029
  16. EPLERENONE [Suspect]
     Active Substance: EPLERENONE
     Indication: Hypertension
     Dosage: 1 DF, QD
     Route: 048
     Dates: end: 20221029
  17. PANTO [PANTOPRAZOLE SODIUM SESQUIHYDRATE] [Concomitant]
     Active Substance: PANTOPRAZOLE SODIUM
     Dosage: UNK
  18. FUROSEMIDE [Concomitant]
     Active Substance: FUROSEMIDE
     Dosage: UNK
  19. PANTOPRAZOLE [Concomitant]
     Active Substance: PANTOPRAZOLE
     Dosage: UNK

REACTIONS (2)
  - Gastrointestinal haemorrhage [Fatal]
  - Cardiogenic shock [Fatal]

NARRATIVE: CASE EVENT DATE: 20221029
